FAERS Safety Report 21785987 (Version 1)
Quarter: 2022Q4

REPORT INFORMATION
  Report Type: Spontaneous
  Country: US (occurrence: US)
  Receive Date: 20221228
  Receipt Date: 20221228
  Transmission Date: 20230112
  Serious: No
  Sender: FDA-Public Use
  Company Number: US-drreddys-SPO/USA/22/0158281

PATIENT
  Age: 68 Year
  Sex: Male

DRUGS (10)
  1. FLUCONAZOLE [Suspect]
     Active Substance: FLUCONAZOLE
     Indication: Candida infection
     Route: 048
  2. FLUCONAZOLE [Suspect]
     Active Substance: FLUCONAZOLE
     Indication: Evidence based treatment
  3. CYCLOPENTOLATE [Concomitant]
     Active Substance: CYCLOPENTOLATE
     Indication: Product used for unknown indication
  4. VORICONAZOLE [Concomitant]
     Active Substance: VORICONAZOLE
     Indication: Candida infection
     Dosage: 10 MG/ML
     Route: 061
  5. VORICONAZOLE [Concomitant]
     Active Substance: VORICONAZOLE
     Indication: Evidence based treatment
  6. AMPHOTERICIN B [Concomitant]
     Active Substance: AMPHOTERICIN B
     Indication: Candida infection
     Dosage: 10 MCG/0.1 ML
  7. TIMOLOL [Concomitant]
     Active Substance: TIMOLOL
     Indication: Intraocular pressure increased
  8. TIMOLOL [Concomitant]
     Active Substance: TIMOLOL
     Indication: Candida infection
  9. VORICONAZOLE 50mcg/0.1 mL [Concomitant]
     Indication: Evidence based treatment
     Dosage: VORICONAZOLE 50MCG/0.1 ML
  10. VORICONAZOLE 50mcg/0.1 mL [Concomitant]
     Indication: Candida infection

REACTIONS (3)
  - Decreased appetite [Unknown]
  - Blood creatinine increased [Unknown]
  - Weight decreased [Unknown]
